FAERS Safety Report 5836113-7 (Version None)
Quarter: 2008Q3

REPORT INFORMATION
  Report Type: 
  Country: None (occurrence: None)
  Receive Date: 20080805
  Receipt Date: 20080721
  Transmission Date: 20090109
  Serious: Yes (Hospitalization)
  Sender: FDA-Public Use
  Company Number: 2008BI018594

PATIENT
  Age: 42 Year
  Sex: Male

DRUGS (4)
  1. AVONEX [Suspect]
     Indication: MULTIPLE SCLEROSIS
     Dosage: IM; IM
     Route: 030
     Dates: start: 20070209, end: 20080106
  2. AVONEX [Suspect]
     Indication: MULTIPLE SCLEROSIS
     Dosage: IM; IM
     Route: 030
     Dates: start: 20080324
  3. HUMALOG [Concomitant]
  4. INSULINA LENTA [Concomitant]

REACTIONS (1)
  - ACUTE MYOCARDIAL INFARCTION [None]
